FAERS Safety Report 13777950 (Version 4)
Quarter: 2017Q4

REPORT INFORMATION
  Report Type: Spontaneous
  Country: GR (occurrence: GR)
  Receive Date: 20170721
  Receipt Date: 20171023
  Transmission Date: 20180320
  Serious: Yes (Hospitalization, Other)
  Sender: FDA-Public Use
  Company Number: GR-PFIZER INC-2017313787

PATIENT
  Age: 64 Year
  Sex: Male

DRUGS (4)
  1. FLUOROURACIL. [Suspect]
     Active Substance: FLUOROURACIL
     Indication: COLORECTAL CANCER METASTATIC
     Dosage: EVERY 2 WEEKS WITH 20% DOSE REDUCTION
     Dates: start: 20160712
  2. AFLIBERCEPT [Suspect]
     Active Substance: AFLIBERCEPT
     Indication: COLORECTAL CANCER METASTATIC
     Dosage: 4 MG/KG, CYCLIC, EVERY 2 WEEKS WITH 20% DOSE REDUCTION
     Dates: start: 20160712
  3. IRINOTECAN HCL [Suspect]
     Active Substance: IRINOTECAN HYDROCHLORIDE
     Indication: COLORECTAL CANCER METASTATIC
     Dosage: EVERY 2 WEEKS WITH 20% DOSE REDUCTION
     Dates: start: 20160712
  4. FOLINIC ACID [Suspect]
     Active Substance: LEUCOVORIN
     Indication: COLORECTAL CANCER METASTATIC
     Dosage: EVERY 2 WEEKS WITH 20% DOSE REDUCTION
     Dates: start: 20160712

REACTIONS (1)
  - Posterior reversible encephalopathy syndrome [Recovered/Resolved]
